FAERS Safety Report 4863727-3 (Version None)
Quarter: 2005Q4

REPORT INFORMATION
  Report Type: 
  Country: None (occurrence: None)
  Receive Date: 20051222
  Receipt Date: 20050715
  Transmission Date: 20060501
  Serious: No
  Sender: FDA-Public Use
  Company Number: US-GLAXOSMITHKLINE-A0566458A

PATIENT
  Age: 81 Year
  Sex: Female

DRUGS (6)
  1. FLONASE [Suspect]
     Dosage: 2SPR TWICE PER DAY
     Route: 045
  2. DIOVAN [Concomitant]
  3. THYROID TAB [Concomitant]
     Route: 065
  4. ACTONEL [Concomitant]
     Route: 065
  5. RANITIDINE [Concomitant]
  6. CALCIUM GLUCONATE [Concomitant]

REACTIONS (1)
  - NASAL ULCER [None]
